FAERS Safety Report 9722632 (Version 2)
Quarter: 2013Q4

REPORT INFORMATION
  Report Type: Spontaneous
  Country: US (occurrence: US)
  Receive Date: 20131202
  Receipt Date: 20131216
  Transmission Date: 20140711
  Serious: No
  Sender: FDA-Public Use
  Company Number: US-PFIZER INC-2013339017

PATIENT
  Sex: Female

DRUGS (8)
  1. NORVASC [Suspect]
     Dosage: UNK
  2. PREMARIN [Suspect]
     Dosage: UNK
  3. LISINOPRIL [Suspect]
     Dosage: UNK
  4. METFORMIN HCL [Suspect]
     Dosage: UNK
  5. TOPROL XL [Suspect]
     Dosage: UNK
  6. PRINIVIL [Suspect]
     Dosage: UNK
  7. MONOPRIL [Suspect]
     Dosage: UNK
  8. LORTAB [Suspect]
     Dosage: UNK

REACTIONS (1)
  - Drug hypersensitivity [Unknown]
